FAERS Safety Report 18507663 (Version 2)
Quarter: 2020Q4

REPORT INFORMATION
  Report Type: Spontaneous
  Country: GB (occurrence: GB)
  Receive Date: 20201116
  Receipt Date: 20201130
  Transmission Date: 20210114
  Serious: Yes (Other)
  Sender: FDA-Public Use
  Company Number: GB-MYLANLABS-2020M1094236

PATIENT
  Sex: Male
  Weight: 80 kg

DRUGS (1)
  1. CLOZARIL [Suspect]
     Active Substance: CLOZAPINE
     Indication: SCHIZOPHRENIA
     Dosage: 450 (150MG, 300MG) MILLIGRAM, QD
     Route: 048
     Dates: start: 20181107

REACTIONS (1)
  - COVID-19 [Recovered/Resolved]
